FAERS Safety Report 13582090 (Version 2)
Quarter: 2017Q2

REPORT INFORMATION
  Report Type: Spontaneous
  Country: IT (occurrence: IT)
  Receive Date: 20170525
  Receipt Date: 20170614
  Transmission Date: 20170830
  Serious: Yes (Hospitalization)
  Sender: FDA-Public Use
  Company Number: IT-BAYER-2016-234470

PATIENT
  Age: 3 Year
  Sex: Male

DRUGS (3)
  1. SIMVASTATIN. [Suspect]
     Active Substance: SIMVASTATIN
     Dosage: 40 MG, ONCE
     Route: 048
     Dates: start: 20160701, end: 20160701
  2. GLUCOVANCE [Suspect]
     Active Substance: GLYBURIDE\METFORMIN HYDROCHLORIDE
     Dosage: 500 MG, QD
     Route: 048
     Dates: start: 20160701, end: 20160701
  3. ASPIRINA 500 MG [Suspect]
     Active Substance: ASPIRIN
     Dosage: 100 MG, ONCE
     Route: 048
     Dates: start: 20160701, end: 20160701

REACTIONS (3)
  - Hypoglycaemia [Recovered/Resolved]
  - Asthenia [Recovered/Resolved]
  - Accidental exposure to product by child [None]

NARRATIVE: CASE EVENT DATE: 20160701
